FAERS Safety Report 10651474 (Version 1)
Quarter: 2014Q4

REPORT INFORMATION
  Report Type: Spontaneous
  Country: BR (occurrence: None)
  Receive Date: 20141210
  Receipt Date: 20141210
  Transmission Date: 20150529
  Serious: Yes (Other)
  Sender: FDA-Public Use
  Company Number: 2014SEB00055

PATIENT
  Age: 04 Year
  Sex: Male

DRUGS (1)
  1. HYDROCORTISONE (HYDROCORTISONE) UNKNOWN [Suspect]
     Active Substance: HYDROCORTISONE
     Indication: NON-HODGKIN^S LYMPHOMA

REACTIONS (1)
  - Posterior reversible encephalopathy syndrome [None]
